FAERS Safety Report 18422272 (Version 1)
Quarter: 2020Q4

REPORT INFORMATION
  Report Type: Spontaneous
  Country: US (occurrence: US)
  Receive Date: 20201023
  Receipt Date: 20201023
  Transmission Date: 20210114
  Serious: No
  Sender: FDA-Public Use
  Company Number: US-JNJFOC-A-US2020-201384

PATIENT
  Age: 54 Year
  Sex: Female
  Weight: 53.52 kg

DRUGS (4)
  1. OPSUMIT [Suspect]
     Active Substance: MACITENTAN
     Indication: PULMONARY ARTERIAL HYPERTENSION
     Dosage: 10 MG, QD
     Route: 048
  2. VELETRI [Suspect]
     Active Substance: EPOPROSTENOL
     Dosage: 30 NG/KG, PER MIN
     Route: 042
  3. VELETRI [Suspect]
     Active Substance: EPOPROSTENOL
     Indication: PULMONARY ARTERIAL HYPERTENSION
     Dosage: 20 NG/KG, PER MIN
     Route: 042
  4. SILDENAFIL CITRATE. [Concomitant]
     Active Substance: SILDENAFIL CITRATE

REACTIONS (9)
  - Pain in jaw [Not Recovered/Not Resolved]
  - Weight decreased [Unknown]
  - Myalgia [Unknown]
  - Chest pain [Recovered/Resolved]
  - Fatigue [Recovering/Resolving]
  - Nasal congestion [Unknown]
  - Diarrhoea [Unknown]
  - Respiration abnormal [Recovering/Resolving]
  - Palpitations [Unknown]
